FAERS Safety Report 15808260 (Version 1)
Quarter: 2019Q1

REPORT INFORMATION
  Report Type: Spontaneous
  Country: US (occurrence: US)
  Receive Date: 20190110
  Receipt Date: 20190110
  Transmission Date: 20190417
  Serious: Yes (Death, Hospitalization)
  Sender: FDA-Public Use
  Company Number: US-PFIZER INC-2019009920

PATIENT
  Age: 11 Month
  Sex: Female

DRUGS (1)
  1. NIFEDIPINE. [Suspect]
     Active Substance: NIFEDIPINE
     Dosage: AT LEAST ONE PARTIALLY DISSOLVED PILL IN HER MOUTH
     Route: 048

REACTIONS (6)
  - Accidental exposure to product [Fatal]
  - Petechiae [Fatal]
  - Toxicity to various agents [Fatal]
  - Atrioventricular block [Fatal]
  - Bradycardia [Fatal]
  - Cardiac arrest [Fatal]

NARRATIVE: CASE EVENT DATE: 2017
